FAERS Safety Report 8187938-7 (Version None)
Quarter: 2012Q1

REPORT INFORMATION
  Report Type: 
  Country: None (occurrence: None)
  Receive Date: 20120306
  Receipt Date: 20120301
  Transmission Date: 20120608
  Serious: Yes (Hospitalization)
  Sender: FDA-Public Use
  Company Number: JP-GLAXOSMITHKLINE-B0779408A

PATIENT
  Sex: Male
  Weight: 90 kg

DRUGS (9)
  1. PREDNISOLONE [Concomitant]
     Indication: IDIOPATHIC THROMBOCYTOPENIC PURPURA
     Dosage: 5MG PER DAY
     Route: 048
     Dates: end: 20110630
  2. PREDNISOLONE [Concomitant]
     Dosage: 4MG PER DAY
     Route: 048
     Dates: start: 20110701, end: 20110715
  3. NATEGLINIDE [Concomitant]
     Dosage: 270MG PER DAY
     Route: 048
  4. PROMACTA [Suspect]
     Dosage: 12.5MG TWICE PER DAY
     Route: 048
     Dates: start: 20120117, end: 20120131
  5. PREDNISOLONE [Concomitant]
     Dosage: 2MG PER DAY
     Route: 048
     Dates: start: 20110730, end: 20110824
  6. PREDNISOLONE [Concomitant]
     Dosage: 1MG PER DAY
     Route: 048
     Dates: start: 20110825, end: 20110913
  7. PROMACTA [Suspect]
     Indication: IDIOPATHIC THROMBOCYTOPENIC PURPURA
     Dosage: 12.5MG PER DAY
     Route: 048
     Dates: start: 20110701, end: 20120116
  8. BASEN [Concomitant]
     Dosage: .9MG PER DAY
     Route: 048
  9. PREDNISOLONE [Concomitant]
     Dosage: 3MG PER DAY
     Route: 048
     Dates: start: 20110716, end: 20110729

REACTIONS (1)
  - CEREBRAL INFARCTION [None]
